FAERS Safety Report 8237091-6 (Version None)
Quarter: 2012Q1

REPORT INFORMATION
  Report Type: 
  Country: None (occurrence: None)
  Receive Date: 20120327
  Receipt Date: 20120320
  Transmission Date: 20120608
  Serious: Yes (Other)
  Sender: FDA-Public Use
  Company Number: US-SANOFI-AVENTIS-2012SA009622

PATIENT
  Age: 68 Year
  Sex: Female
  Weight: 55.33 kg

DRUGS (14)
  1. ACETAMINOPHEN AND HYDROCODONE BITARTRATE [Concomitant]
     Indication: PAIN
     Dosage: 5/50 MG
     Dates: start: 20080101
  2. DIOVAN [Concomitant]
     Indication: BLOOD PRESSURE
     Route: 048
     Dates: end: 20110101
  3. CARAFATE [Concomitant]
  4. LASIX [Concomitant]
     Indication: FLUID RETENTION
     Dates: start: 20100101
  5. MULTI-VITAMINS [Concomitant]
  6. PLAVIX [Suspect]
     Route: 048
     Dates: start: 20110201
  7. PLAVIX [Suspect]
     Route: 048
     Dates: start: 20020101, end: 20110201
  8. BENTYL [Concomitant]
  9. RIFAXIMIN [Concomitant]
  10. PLAVIX [Suspect]
     Route: 048
     Dates: start: 20110201
  11. ACETAMINOPHEN AND HYDROCODONE BITARTRATE [Concomitant]
     Dosage: 5/50 MG
     Dates: start: 20080101
  12. PLAVIX [Suspect]
     Indication: STENT PLACEMENT
     Route: 048
     Dates: start: 20020101, end: 20110201
  13. SPIRONOLACTONE [Concomitant]
     Indication: FLUID RETENTION
     Route: 048
     Dates: start: 20100101
  14. ZOFRAN [Concomitant]

REACTIONS (16)
  - PAIN [None]
  - ASCITES [None]
  - NAUSEA [None]
  - EPISTAXIS [None]
  - ABDOMINAL DISCOMFORT [None]
  - ABDOMINAL PAIN [None]
  - COELIAC ARTERY OCCLUSION [None]
  - WEIGHT DECREASED [None]
  - ANAEMIA [None]
  - HAEMORRHAGIC DIATHESIS [None]
  - FAECES DISCOLOURED [None]
  - RECTAL HAEMORRHAGE [None]
  - CONTUSION [None]
  - ULCER [None]
  - DIARRHOEA [None]
  - VOMITING [None]
